FAERS Safety Report 14588093 (Version 1)
Quarter: 2018Q1

REPORT INFORMATION
  Report Type: Spontaneous
  Country: CA (occurrence: CA)
  Receive Date: 20180301
  Receipt Date: 20180301
  Transmission Date: 20180509
  Serious: Yes (Other)
  Sender: FDA-Public Use
  Company Number: CA-PFIZER INC-2018080320

PATIENT
  Age: 66 Year
  Sex: Male
  Weight: 51 kg

DRUGS (1)
  1. FRAGMIN [Suspect]
     Active Substance: DALTEPARIN SODIUM
     Indication: THROMBOSIS PROPHYLAXIS
     Dosage: UNK

REACTIONS (3)
  - Weight decreased [Recovering/Resolving]
  - Product use issue [Unknown]
  - Injection site pain [Unknown]
